FAERS Safety Report 8762685 (Version 5)
Quarter: 2013Q1

REPORT INFORMATION
  Report Type: Report from Study
  Country: JP (occurrence: JP)
  Receive Date: 20120830
  Receipt Date: 20130116
  Transmission Date: 20140127
  Serious: Yes (Other)
  Sender: FDA-Public Use
  Company Number: JP-009507513-2012SP026705

PATIENT
  Age: 32 Year
  Sex: Female
  Weight: 55 kg

DRUGS (9)
  1. PEGINTERFERON ALFA-2B [Suspect]
     Indication: CHRONIC HEPATITIS C
     Dosage: 1.5 MICROGRAM PER KILOGRAM, QW
     Route: 058
     Dates: start: 20120309, end: 20120412
  2. PEGINTERFERON ALFA-2B [Suspect]
     Dosage: 1.5 MICROGRAM PER KILOGRAM, QW
     Route: 058
     Dates: start: 20120427, end: 20120831
  3. REBETOL [Suspect]
     Indication: CHRONIC HEPATITIS C
     Dosage: 600 MG, QD
     Route: 048
     Dates: start: 20120309, end: 20120405
  4. REBETOL [Suspect]
     Dosage: 200 MG, BID
     Route: 048
     Dates: start: 20120406, end: 20120412
  5. REBETOL [Suspect]
     Dosage: 100 MG, QD
     Route: 048
     Dates: start: 20120427, end: 20120517
  6. REBETOL [Suspect]
     Dosage: 200 MG, BID
     Route: 048
     Dates: start: 20120519, end: 20120906
  7. TELAVIC [Suspect]
     Indication: CHRONIC HEPATITIS C
     Dosage: 2250 MG, QD
     Route: 048
     Dates: start: 20120309, end: 20120405
  8. TELAVIC [Suspect]
     Dosage: 750 MG, BID
     Route: 048
     Dates: start: 20120406, end: 20120412
  9. TELAVIC [Suspect]
     Dosage: 750 MG, BID
     Route: 048
     Dates: start: 20120427, end: 20120614

REACTIONS (3)
  - Anaemia [Recovered/Resolved with Sequelae]
  - White blood cell count decreased [Recovered/Resolved with Sequelae]
  - Neutrophil count decreased [Recovered/Resolved with Sequelae]
